FAERS Safety Report 17012515 (Version 2)
Quarter: 2019Q4

REPORT INFORMATION
  Report Type: Report from Study
  Country: None (occurrence: SA)
  Receive Date: 20191108
  Receipt Date: 20191116
  Transmission Date: 20200122
  Serious: Yes (Death)
  Sender: FDA-Public Use
  Company Number: SA-ABBVIE-19K-259-2996954-00

PATIENT
  Age: 58 Year
  Sex: Female

DRUGS (1)
  1. DUODOPA [Suspect]
     Active Substance: CARBIDOPA\LEVODOPA
     Indication: PARKINSON^S DISEASE
     Dosage: 5.6ML?20 MG/ML 5 MG/ML
     Route: 050
     Dates: start: 2017, end: 20191031

REACTIONS (1)
  - Death [Fatal]

NARRATIVE: CASE EVENT DATE: 20191031
